FAERS Safety Report 19470008 (Version 1)
Quarter: 2021Q2

REPORT INFORMATION
  Report Type: Report from Study
  Country: US (occurrence: US)
  Receive Date: 20210629
  Receipt Date: 20210629
  Transmission Date: 20210717
  Serious: Yes (Hospitalization, Other)
  Sender: FDA-Public Use
  Company Number: US-B.I. PHARMACEUTICALS,INC./RIDGEFIELD-2021-BI-092922

PATIENT
  Age: 82 Year
  Sex: Male

DRUGS (3)
  1. OFEV [Suspect]
     Active Substance: NINTEDANIB
     Indication: IDIOPATHIC PULMONARY FIBROSIS
     Dosage: 150MG BID
     Route: 048
     Dates: start: 20200703, end: 20201228
  2. OFEV [Suspect]
     Active Substance: NINTEDANIB
     Dosage: 100 MG DAILY
     Route: 048
     Dates: start: 2020
  3. IMODIUM [Concomitant]
     Active Substance: LOPERAMIDE HYDROCHLORIDE
     Indication: DIARRHOEA
     Dosage: ONCE DAILY
     Route: 048
     Dates: start: 202012

REACTIONS (5)
  - Haemorrhage [Recovered/Resolved]
  - Haematochezia [Recovered/Resolved]
  - Diarrhoea [Recovering/Resolving]
  - Colon cancer [Recovered/Resolved]
  - Colon cancer [Recovering/Resolving]

NARRATIVE: CASE EVENT DATE: 202012
